FAERS Safety Report 23882440 (Version 1)
Quarter: 2024Q2

REPORT INFORMATION
  Report Type: Spontaneous
  Country: US (occurrence: US)
  Receive Date: 20240522
  Receipt Date: 20240522
  Transmission Date: 20240716
  Serious: No
  Sender: FDA-Public Use
  Company Number: US-BRISTOL-MYERS SQUIBB COMPANY-2024-077535

PATIENT
  Age: 60 Year
  Sex: Male

DRUGS (2)
  1. MAVACAMTEN [Suspect]
     Active Substance: MAVACAMTEN
     Indication: Hypertrophic cardiomyopathy
  2. MAVACAMTEN [Suspect]
     Active Substance: MAVACAMTEN

REACTIONS (1)
  - Ejection fraction decreased [Unknown]
